FAERS Safety Report 22149210 (Version 2)
Quarter: 2023Q1

REPORT INFORMATION
  Report Type: Other
  Country: CN (occurrence: None)
  Receive Date: 20230329
  Receipt Date: 20230331
  Transmission Date: 20230417
  Serious: Yes (Death)
  Sender: FDA-Public Use
  Company Number: CN-ROCHE-3318559

PATIENT
  Age: 50 Year
  Sex: Male

DRUGS (4)
  1. CAPECITABINE [Suspect]
     Active Substance: CAPECITABINE
     Indication: Colon cancer
     Dosage: D1-14
     Route: 048
     Dates: start: 20170209
  2. CAPECITABINE [Suspect]
     Active Substance: CAPECITABINE
     Indication: Testicular cancer metastatic
     Route: 065
     Dates: start: 20210429
  3. BEVACIZUMAB [Suspect]
     Active Substance: BEVACIZUMAB
     Indication: Colon cancer
     Route: 065
  4. BEVACIZUMAB [Suspect]
     Active Substance: BEVACIZUMAB
     Indication: Testicular cancer metastatic

REACTIONS (1)
  - Neoplasm progression [Fatal]
